FAERS Safety Report 6358065-6 (Version None)
Quarter: 2009Q3

REPORT INFORMATION
  Report Type: 
  Country: None (occurrence: None)
  Receive Date: 20090916
  Receipt Date: 20090910
  Transmission Date: 20100115
  Serious: Yes (Hospitalization)
  Sender: FDA-Public Use
  Company Number: A0807333A

PATIENT
  Age: 41 Year
  Sex: Female
  Weight: 89.3 kg

DRUGS (5)
  1. LAPATINIB [Suspect]
     Indication: BREAST CANCER
     Dosage: 1000MG PER DAY
     Route: 048
     Dates: start: 20090520
  2. TRASTUZUMAB [Suspect]
     Indication: BREAST CANCER
     Dosage: 2MGK WEEKLY
     Route: 042
     Dates: start: 20090520
  3. CARBOPLATIN [Suspect]
     Indication: BREAST CANCER
     Route: 042
     Dates: start: 20090520
  4. DOCETAXEL [Suspect]
     Indication: BREAST CANCER
     Dosage: 75MGM2 EVERY 3 WEEKS
     Route: 042
     Dates: start: 20090520
  5. NEULASTA [Concomitant]
     Dosage: 6MG EVERY 3 WEEKS
     Route: 058
     Dates: start: 20090521

REACTIONS (6)
  - AXILLARY PAIN [None]
  - BREAST PAIN [None]
  - BREAST SWELLING [None]
  - CELLULITIS [None]
  - LOCAL SWELLING [None]
  - PYREXIA [None]
